FAERS Safety Report 7910055-5 (Version None)
Quarter: 2011Q4

REPORT INFORMATION
  Report Type: 
  Country: None (occurrence: None)
  Receive Date: 20111111
  Receipt Date: 20111031
  Transmission Date: 20120403
  Serious: Yes (Death)
  Sender: FDA-Public Use
  Company Number: US-ROCHE-1009040

PATIENT
  Age: 2 Day
  Sex: Male
  Weight: 2.2 kg

DRUGS (2)
  1. HEPARIN SODIUM [Concomitant]
     Indication: THROMBOLYSIS
  2. ACTIVASE [Suspect]
     Indication: THROMBOLYSIS

REACTIONS (1)
  - HAEMORRHAGE INTRACRANIAL [None]
